FAERS Safety Report 16475741 (Version 6)
Quarter: 2022Q1

REPORT INFORMATION
  Report Type: Spontaneous
  Country: US (occurrence: None)
  Receive Date: 20190625
  Receipt Date: 20220321
  Transmission Date: 20220423
  Serious: Yes (Hospitalization, Other)
  Sender: FDA-Public Use
  Company Number: 2019SE11678

PATIENT
  Age: 19395 Day
  Sex: Female
  Weight: 133.8 kg

DRUGS (52)
  1. PRILOSEC [Suspect]
     Active Substance: OMEPRAZOLE MAGNESIUM
     Indication: Gastrooesophageal reflux disease
     Route: 048
     Dates: start: 19970101, end: 20180101
  2. PRILOSEC [Suspect]
     Active Substance: OMEPRAZOLE MAGNESIUM
     Indication: Gastrooesophageal reflux disease
     Route: 048
     Dates: start: 199701, end: 201801
  3. PRILOSEC [Suspect]
     Active Substance: OMEPRAZOLE MAGNESIUM
     Indication: Gastrooesophageal reflux disease
     Dosage: GENERIC OMEPRAZOLE
     Route: 065
     Dates: start: 201003, end: 201905
  4. PRILOSEC [Suspect]
     Active Substance: OMEPRAZOLE MAGNESIUM
     Indication: Gastrooesophageal reflux disease
     Route: 048
     Dates: start: 20140108
  5. PRILOSEC OTC [Suspect]
     Active Substance: OMEPRAZOLE MAGNESIUM
     Indication: Gastrooesophageal reflux disease
     Route: 048
     Dates: start: 200307, end: 201905
  6. PREVACID [Suspect]
     Active Substance: LANSOPRAZOLE
     Indication: Gastrooesophageal reflux disease
     Route: 065
     Dates: start: 19970101, end: 20180101
  7. PREVACID [Suspect]
     Active Substance: LANSOPRAZOLE
     Indication: Gastrooesophageal reflux disease
     Route: 065
     Dates: start: 199701, end: 201801
  8. PREVACID 24 HR [Suspect]
     Active Substance: LANSOPRAZOLE
     Indication: Gastrooesophageal reflux disease
     Route: 065
     Dates: start: 200906, end: 201905
  9. CARVEDILOL [Concomitant]
     Active Substance: CARVEDILOL
     Indication: Hypertension
     Dates: start: 20110923, end: 20120223
  10. FUROSEMIDE/ LASIX [Concomitant]
     Indication: Fluid retention
     Dates: start: 20100905, end: 20131021
  11. FUROSEMIDE/ LASIX [Concomitant]
     Indication: Fluid retention
     Route: 048
     Dates: start: 20100905, end: 20131021
  12. IBUPROFEN [Concomitant]
     Active Substance: IBUPROFEN
     Indication: Pain
  13. ACETAMINOPHEN [Concomitant]
     Active Substance: ACETAMINOPHEN
     Indication: Pain
  14. TAGAMET HB [Concomitant]
     Active Substance: CIMETIDINE
     Dates: start: 2009, end: 201905
  15. ZANTAC [Concomitant]
     Active Substance: RANITIDINE HYDROCHLORIDE
     Dosage: 150
     Dates: start: 2009, end: 201905
  16. ZANTAC [Concomitant]
     Active Substance: RANITIDINE HYDROCHLORIDE
     Dosage: 75
     Dates: start: 2009, end: 201905
  17. FAMOTIDINE/PEPCID [Concomitant]
     Dates: start: 2009, end: 201905
  18. FAMOTIDINE/PEPCID [Concomitant]
     Dosage: PEPCID AC (OTC)
     Dates: start: 2009, end: 201905
  19. FAMOTIDINE/PEPCID [Concomitant]
     Dosage: FAMOTIDINE (OTC)
     Dates: start: 2009, end: 201905
  20. FAMOTIDINE/PEPCID [Concomitant]
     Dosage: PEPCID COMPLETE (OTC)
     Dates: start: 2009, end: 201905
  21. WELLBUTRIN XL [Concomitant]
     Active Substance: BUPROPION HYDROCHLORIDE
     Route: 048
     Dates: start: 20131018
  22. CELEXA [Concomitant]
     Active Substance: CITALOPRAM HYDROBROMIDE
     Route: 048
     Dates: start: 20131018
  23. BENADRYL [Concomitant]
     Active Substance: DIPHENHYDRAMINE HYDROCHLORIDE
     Route: 048
  24. NAPROXEN [Concomitant]
     Active Substance: NAPROXEN
     Route: 048
  25. NEURONTIN [Concomitant]
     Active Substance: GABAPENTIN
  26. LANTHANUM [Concomitant]
     Active Substance: LANTHANUM
  27. RENVELA [Concomitant]
     Active Substance: SEVELAMER CARBONATE
  28. THIAMINE [Concomitant]
     Active Substance: THIAMINE
  29. LORATADINE [Concomitant]
     Active Substance: LORATADINE
  30. NYSTATIN [Concomitant]
     Active Substance: NYSTATIN
  31. EMLA [Concomitant]
     Active Substance: LIDOCAINE\PRILOCAINE
  32. LOVENOX [Concomitant]
     Active Substance: ENOXAPARIN SODIUM
  33. FLUCONAZOLE [Concomitant]
     Active Substance: FLUCONAZOLE
  34. MELATONIN [Concomitant]
     Active Substance: MELATONIN
  35. AUGMENTIN [Concomitant]
     Active Substance: AMOXICILLIN\CLAVULANATE POTASSIUM
  36. CARVEDILOL [Concomitant]
     Active Substance: CARVEDILOL
  37. DOCUSATE [Concomitant]
     Active Substance: DOCUSATE
  38. ZOFRAN [Concomitant]
     Active Substance: ONDANSETRON HYDROCHLORIDE
  39. BUPROPION [Concomitant]
     Active Substance: BUPROPION
  40. VANCOMYCIN [Concomitant]
     Active Substance: VANCOMYCIN
  41. BISACODYL [Concomitant]
     Active Substance: BISACODYL
  42. VITAMINS [Concomitant]
     Active Substance: VITAMINS
  43. ACETAMINOPHEN [Concomitant]
     Active Substance: ACETAMINOPHEN
  44. NYSTATIN [Concomitant]
     Active Substance: NYSTATIN
  45. CITALOPRAM [Concomitant]
     Active Substance: CITALOPRAM HYDROBROMIDE
  46. GABAPENTIN [Concomitant]
     Active Substance: GABAPENTIN
  47. ONDANSELTRON [Concomitant]
  48. SEVELAMER [Concomitant]
     Active Substance: SEVELAMER
  49. SENSIPAR [Concomitant]
     Active Substance: CINACALCET HYDROCHLORIDE
  50. FUROSEMIDE [Concomitant]
     Active Substance: FUROSEMIDE
  51. MIRALAX [Concomitant]
     Active Substance: POLYETHYLENE GLYCOL 3350
  52. SENOKOT [Concomitant]
     Active Substance: SENNOSIDES

REACTIONS (9)
  - Chronic kidney disease [Not Recovered/Not Resolved]
  - Renal injury [Unknown]
  - Acute kidney injury [Not Recovered/Not Resolved]
  - End stage renal disease [Not Recovered/Not Resolved]
  - Renal failure [Unknown]
  - Nephrogenic anaemia [Unknown]
  - Hyperparathyroidism secondary [Unknown]
  - Tubulointerstitial nephritis [Unknown]
  - Gastrooesophageal reflux disease [Not Recovered/Not Resolved]

NARRATIVE: CASE EVENT DATE: 20140630
